FAERS Safety Report 15050087 (Version 3)
Quarter: 2020Q1

REPORT INFORMATION
  Report Type: Spontaneous
  Country: JP (occurrence: JP)
  Receive Date: 20180622
  Receipt Date: 20200131
  Transmission Date: 20200409
  Serious: Yes (Other)
  Sender: FDA-Public Use
  Company Number: PHJP2018JP012794

PATIENT
  Sex: Female

DRUGS (2)
  1. AZORGA COMBINATION OPHTHALMIC SUSPENSION [Suspect]
     Active Substance: BRINZOLAMIDE\TIMOLOL MALEATE
     Indication: OCULAR HYPERTENSION
     Route: 047
  2. GLANATEC [Concomitant]
     Active Substance: RIPASUDIL HYDROCHLORIDE DIHYDRATE
     Indication: OCULAR HYPERTENSION
     Dosage: UNK
     Route: 047

REACTIONS (2)
  - Arrhythmia [Recovered/Resolved]
  - Eyelids pruritus [Unknown]

NARRATIVE: CASE EVENT DATE: 201803
